FAERS Safety Report 20856655 (Version 3)
Quarter: 2022Q4

REPORT INFORMATION
  Report Type: Spontaneous
  Country: US (occurrence: US)
  Receive Date: 20220520
  Receipt Date: 20221018
  Transmission Date: 20230113
  Serious: Yes (Other)
  Sender: FDA-Public Use
  Company Number: US-SA-SAC20220512001952

PATIENT
  Age: 52 Year
  Sex: Male

DRUGS (2)
  1. DUPIXENT [Suspect]
     Active Substance: DUPILUMAB
     Indication: Nasal polyps
     Dosage: 300 MG, OTHER
     Route: 058
     Dates: start: 202202, end: 202203
  2. NUCALA [Concomitant]
     Active Substance: MEPOLIZUMAB
     Dosage: UNK
     Dates: start: 2022

REACTIONS (4)
  - Pulmonary thrombosis [Unknown]
  - Muscle spasms [Not Recovered/Not Resolved]
  - Cough [Unknown]
  - Upper respiratory tract irritation [Unknown]

NARRATIVE: CASE EVENT DATE: 20220307
